FAERS Safety Report 8256197-9 (Version None)
Quarter: 2012Q2

REPORT INFORMATION
  Report Type: 
  Country: None (occurrence: None)
  Receive Date: 20120403
  Receipt Date: 20120329
  Transmission Date: 20120825
  Serious: Yes (Death, Hospitalization)
  Sender: FDA-Public Use
  Company Number: DK-ROCHE-750112

PATIENT
  Sex: Female

DRUGS (11)
  1. MABTHERA [Suspect]
     Indication: DIFFUSE LARGE B-CELL LYMPHOMA
     Dosage: DATE OF LAST DOSE PRIOR TO SAE: 10 DECEMBER 2010
     Route: 042
  2. SULFOTRIM [Concomitant]
     Indication: ANTIFUNGAL PROPHYLAXIS
     Dosage: DOSE: 400/80 MG
     Route: 048
     Dates: start: 20101110, end: 20101222
  3. KININ [Concomitant]
     Indication: RESTLESS LEGS SYNDROME
     Route: 048
     Dates: start: 20101027, end: 20101222
  4. FLUCONAZOLE [Concomitant]
     Indication: ORAL CANDIDIASIS
     Route: 048
     Dates: start: 20101210, end: 20101222
  5. VINCRISTINE [Suspect]
     Indication: DIFFUSE LARGE B-CELL LYMPHOMA
     Dosage: DATE OF LAST DOSE PRIOR TO SAE: 10 DECEMBER 2010
     Route: 042
  6. DOXORUBICIN HCL [Suspect]
     Indication: DIFFUSE LARGE B-CELL LYMPHOMA
     Dosage: DATE OF LAST DOSE PRIOR TO SAE: 10 DECEMBER 2010
     Route: 042
  7. PREDNISONE TAB [Suspect]
     Indication: DIFFUSE LARGE B-CELL LYMPHOMA
     Dosage: DATE OF LAST DOSE PRIOR TO SAE: 14 DECEMBER 2010
     Route: 048
  8. ACYCLOVIR [Concomitant]
     Indication: ANTIVIRAL PROPHYLAXIS
     Route: 048
     Dates: start: 20101110, end: 20101219
  9. CYCLOPHOSPHAMIDE [Suspect]
     Indication: DIFFUSE LARGE B-CELL LYMPHOMA
     Dosage: DATE OF LAST DOSE PRIOR TO SAE: 10 DECEMBER 2010
     Route: 042
  10. FILGRASTIM [Suspect]
     Indication: DIFFUSE LARGE B-CELL LYMPHOMA
     Dosage: DATE OF LAST ADMINISTRATION: 13 DECEMBER 2010
     Route: 058
  11. OXYCONTIN [Concomitant]
     Indication: PAIN
     Route: 048
     Dates: start: 20100922, end: 20101222

REACTIONS (1)
  - NEUTROPENIC SEPSIS [None]
